FAERS Safety Report 8850786 (Version 1)
Quarter: 2012Q4

REPORT INFORMATION
  Report Type: 
  Country: CH (occurrence: CH)
  Receive Date: 20121019
  Receipt Date: 20121019
  Transmission Date: 20130627
  Serious: Yes (Other)
  Sender: FDA-Public Use
  Company Number: CH-UCBSA-068960

PATIENT
  Age: 30 Year
  Sex: Female

DRUGS (2)
  1. KEPPRA [Suspect]
     Indication: EPILEPSY
     Route: 048
     Dates: start: 20120425
  2. YASMINELLE [Concomitant]
     Route: 048

REACTIONS (1)
  - Hypomania [Not Recovered/Not Resolved]
